FAERS Safety Report 7008756-9 (Version None)
Quarter: 2010Q3

REPORT INFORMATION
  Report Type: 
  Country: None (occurrence: None)
  Receive Date: 20100921
  Receipt Date: 20100909
  Transmission Date: 20110219
  Serious: Yes (Hospitalization)
  Sender: FDA-Public Use
  Company Number: 2010SP048262

PATIENT
  Age: 17 Year
  Sex: Female

DRUGS (11)
  1. REMERON [Suspect]
     Indication: MAJOR DEPRESSION
     Dosage: 15 MG; QD; PO, 30 MG; QD; PO
     Route: 048
     Dates: start: 20081216
  2. REMERON [Suspect]
     Indication: MAJOR DEPRESSION
     Dosage: 15 MG; QD; PO, 30 MG; QD; PO
     Route: 048
     Dates: start: 20090227
  3. SEROQUEL [Suspect]
     Indication: MAJOR DEPRESSION
     Dosage: 25 MG; TID; PO, 700 MG; ; PO, 2100 MG; ONCE; PO
     Route: 048
     Dates: start: 20081210
  4. SEROQUEL [Suspect]
     Indication: MAJOR DEPRESSION
     Dosage: 25 MG; TID; PO, 700 MG; ; PO, 2100 MG; ONCE; PO
     Route: 048
     Dates: start: 20090306
  5. SEROQUEL [Suspect]
     Indication: MAJOR DEPRESSION
     Dosage: 25 MG; TID; PO, 700 MG; ; PO, 2100 MG; ONCE; PO
     Route: 048
     Dates: start: 20090330
  6. NOZINAN /00038603/ [Concomitant]
  7. TEMESTA [Concomitant]
  8. ACETAMINOPHEN [Concomitant]
  9. MEFENACID [Concomitant]
  10. MOTILIUM [Concomitant]
  11. BEXIN /00048102/ [Concomitant]

REACTIONS (8)
  - ANAEMIA [None]
  - COMA SCALE [None]
  - HYPOKALAEMIA [None]
  - HYPOTENSION [None]
  - OFF LABEL USE [None]
  - SUICIDE ATTEMPT [None]
  - TACHYCARDIA [None]
  - TACHYPNOEA [None]
